FAERS Safety Report 5108252-X (Version None)
Quarter: 2006Q3

REPORT INFORMATION
  Report Type: 
  Country: None (occurrence: None)
  Receive Date: 20060914
  Receipt Date: 20060914
  Transmission Date: 20061208
  Serious: Yes (Hospitalization)
  Sender: FDA-Public Use
  Company Number: None

PATIENT
  Age: 70 Year
  Sex: Male

DRUGS (14)
  1. ENALAPRIL MALEATE [Suspect]
     Indication: HYPERTENSION
     Dosage: 40MG PO BID
     Dates: start: 20060101, end: 20060620
  2. SPIRONOLACTONE [Suspect]
     Indication: HYPERTENSION
     Dosage: 25MG PO QD
     Dates: start: 20060301, end: 20060620
  3. ACETAMINOPHEN [Concomitant]
  4. ANTI-EMBOLISM STOCKING [Concomitant]
  5. ATENOLOL [Concomitant]
  6. ENALAPRIL MALEATE [Concomitant]
  7. FUROSEMIDE [Concomitant]
  8. LASIX [Concomitant]
  9. GOSERELIN ACETATE [Concomitant]
  10. ISOSORBIDE DINITRATE [Concomitant]
  11. SIMVASTATIN [Concomitant]
  12. SPIRONOLACTONE [Concomitant]
  13. WARFARIN SODIUM [Concomitant]
  14. POTASSIUM CHLORIDE [Concomitant]

REACTIONS (1)
  - HYPERKALAEMIA [None]
